FAERS Safety Report 12173065 (Version 1)
Quarter: 2016Q1

REPORT INFORMATION
  Report Type: Report from Study
  Country: US (occurrence: US)
  Receive Date: 20160311
  Receipt Date: 20160311
  Transmission Date: 20160526
  Serious: Yes (Hospitalization)
  Sender: FDA-Public Use
  Company Number: US-ASTRAZENECA-2016SE19833

PATIENT
  Age: 26423 Day
  Sex: Male
  Weight: 81.6 kg

DRUGS (5)
  1. DALIRESP [Suspect]
     Active Substance: ROFLUMILAST
     Indication: CHRONIC OBSTRUCTIVE PULMONARY DISEASE
     Route: 048
     Dates: start: 20120223
  2. DALIRESP [Suspect]
     Active Substance: ROFLUMILAST
     Indication: EMPHYSEMA
     Route: 048
     Dates: start: 20120223
  3. OXYGEN. [Concomitant]
     Active Substance: OXYGEN
     Dosage: 3 LITERS CONTINUOUSLY
  4. NOVOLOG [Concomitant]
     Active Substance: INSULIN ASPART
     Indication: DIABETES MELLITUS
     Dosage: THREE TIMES A DAY
     Route: 058
  5. LEVIMER [Concomitant]
     Indication: DIABETES MELLITUS
     Route: 058

REACTIONS (5)
  - Fall [Recovered/Resolved]
  - Rib fracture [Recovered/Resolved]
  - Chronic obstructive pulmonary disease [Recovered/Resolved]
  - Drug dose omission [Not Recovered/Not Resolved]
  - Pneumothorax [Recovered/Resolved]

NARRATIVE: CASE EVENT DATE: 20140123
